FAERS Safety Report 5468355-7 (Version None)
Quarter: 2007Q3

REPORT INFORMATION
  Report Type: 
  Country: None (occurrence: None)
  Receive Date: 20070926
  Receipt Date: 20070918
  Transmission Date: 20080115
  Serious: Yes (Hospitalization)
  Sender: FDA-Public Use
  Company Number: B0485886A

PATIENT
  Age: 77 Year
  Sex: Female

DRUGS (5)
  1. NABUMETONE [Suspect]
     Route: 048
  2. LORNOXICAM [Concomitant]
     Route: 065
  3. FENTANYL [Concomitant]
     Route: 065
  4. SERTRALINE [Concomitant]
     Route: 065
  5. LOSARTAN POSTASSIUM [Concomitant]
     Route: 065

REACTIONS (10)
  - ABDOMINAL PAIN [None]
  - CHEST DISCOMFORT [None]
  - DIARRHOEA [None]
  - DIZZINESS [None]
  - DRUG HYPERSENSITIVITY [None]
  - DYSPNOEA [None]
  - HYPOTENSION [None]
  - PALMAR ERYTHEMA [None]
  - PRURITUS GENERALISED [None]
  - TACHYCARDIA [None]
